FAERS Safety Report 20013441 (Version 1)
Quarter: 2021Q4

REPORT INFORMATION
  Report Type: Spontaneous
  Country: FR (occurrence: FR)
  Receive Date: 20211029
  Receipt Date: 20211029
  Transmission Date: 20220303
  Serious: Yes (Other)
  Sender: FDA-Public Use
  Company Number: None

PATIENT
  Age: 6 Month
  Sex: Female
  Weight: 6.81 kg

DRUGS (3)
  1. NALBUPHINE [Suspect]
     Active Substance: NALBUPHINE
     Indication: Pain
     Dosage: INCONNUE
     Route: 042
     Dates: start: 20210702, end: 20210702
  2. MIDAZOLAM [Suspect]
     Active Substance: MIDAZOLAM
     Indication: Sedation
     Dosage: INCONNUE
     Route: 042
     Dates: start: 20210702, end: 20210702
  3. NITROUS OXIDE\OXYGEN [Suspect]
     Active Substance: NITROUS OXIDE\OXYGEN
     Indication: Pain
     Dosage: INCONNUE
     Route: 055
     Dates: start: 20210702, end: 20210702

REACTIONS (5)
  - Tachycardia [Recovered/Resolved]
  - Cyanosis [Recovered/Resolved]
  - Respiratory rate decreased [Recovered/Resolved]
  - Malaise [Recovered/Resolved]
  - Off label use [Unknown]

NARRATIVE: CASE EVENT DATE: 20210702
